FAERS Safety Report 21416543 (Version 1)
Quarter: 2022Q4

REPORT INFORMATION
  Report Type: Spontaneous
  Country: US (occurrence: None)
  Receive Date: 20221005
  Receipt Date: 20221005
  Transmission Date: 20230113
  Serious: No
  Sender: FDA-Public Use
  Company Number: None

PATIENT
  Age: 57 Year
  Sex: Female
  Weight: 54 kg

DRUGS (12)
  1. HERBALS\MITRAGYNINE [Suspect]
     Active Substance: HERBALS\MITRAGYNINE
     Indication: Pain
     Route: 048
     Dates: start: 20200101, end: 20221002
  2. GABAPENTIN [Concomitant]
     Active Substance: GABAPENTIN
  3. LIPITOR [Concomitant]
     Active Substance: ATORVASTATIN CALCIUM
  4. DULOXETINE [Concomitant]
     Active Substance: DULOXETINE
  5. CANNABIS SATIVA SUBSP. INDICA TOP [Concomitant]
     Active Substance: CANNABIS SATIVA SUBSP. INDICA TOP
  6. CANNABIDIOL\HERBALS [Concomitant]
     Active Substance: CANNABIDIOL\HERBALS
  7. ATIVAN [Concomitant]
     Active Substance: LORAZEPAM
  8. VITAMIN D2 [Concomitant]
     Active Substance: ERGOCALCIFEROL
  9. women^s vitamin for over 55 [Concomitant]
  10. MAGNESIUM [Concomitant]
     Active Substance: MAGNESIUM
  11. organic food supplement [Concomitant]
  12. WHEY [Concomitant]
     Active Substance: WHEY

REACTIONS (4)
  - Dependence [None]
  - Restlessness [None]
  - Nervousness [None]
  - Drug withdrawal syndrome [None]

NARRATIVE: CASE EVENT DATE: 20210930
